FAERS Safety Report 4578002-4 (Version None)
Quarter: 2005Q1

REPORT INFORMATION
  Report Type: 
  Country: None (occurrence: None)
  Receive Date: 20050209
  Receipt Date: 20050131
  Transmission Date: 20050727
  Serious: Yes (Hospitalization)
  Sender: FDA-Public Use
  Company Number: 2005024212

PATIENT
  Age: 71 Year
  Sex: Female

DRUGS (2)
  1. ALPRAZOLAM [Suspect]
     Indication: ILL-DEFINED DISORDER
     Dosage: 25 MG (DAILY), ORAL
     Route: 048
  2. ALTIZIDE/SPIRONOLACTONE (SPIRONOLACTONE, ALTIZIDE) [Suspect]
     Indication: ILL-DEFINED DISORDER
     Dosage: IDF (DAILY), ORAL
     Route: 048

REACTIONS (8)
  - C-REACTIVE PROTEIN INCREASED [None]
  - CALCULUS URINARY [None]
  - HYPONATRAEMIA [None]
  - LOSS OF CONSCIOUSNESS [None]
  - MALAISE [None]
  - PYREXIA [None]
  - URINARY TRACT DISORDER [None]
  - URINARY TRACT INFECTION [None]
